FAERS Safety Report 6349422-2 (Version None)
Quarter: 2009Q3

REPORT INFORMATION
  Report Type: 
  Country: None (occurrence: None)
  Receive Date: 20090911
  Receipt Date: 20090901
  Transmission Date: 20100115
  Serious: Yes (Other)
  Sender: FDA-Public Use
  Company Number: BR-PFIZER INC-2009262453

PATIENT
  Age: 87 Year

DRUGS (5)
  1. FRONTAL [Suspect]
     Indication: INSOMNIA
     Dosage: UNK
     Route: 048
     Dates: start: 20090729, end: 20090804
  2. GALANTAMINE [Concomitant]
     Dosage: UNK
  3. SEROQUEL [Concomitant]
     Dosage: UNK
  4. HALOPERIDOL [Concomitant]
     Dosage: UNK
  5. OMEPRAZOLE [Concomitant]
     Dosage: UNK

REACTIONS (4)
  - AMNESIA [None]
  - DYSSTASIA [None]
  - SYNCOPE [None]
  - TONGUE DISORDER [None]
